FAERS Safety Report 7395144-9 (Version None)
Quarter: 2011Q2

REPORT INFORMATION
  Report Type: 
  Country: None (occurrence: None)
  Receive Date: 20110405
  Receipt Date: 20110323
  Transmission Date: 20111010
  Serious: Yes (Hospitalization, Other)
  Sender: FDA-Public Use
  Company Number: PHHY2010JP27099

PATIENT
  Sex: Female

DRUGS (9)
  1. NOLVADEX [Concomitant]
     Indication: METASTASES TO LYMPH NODES
     Dosage: 20 MG
     Route: 048
     Dates: start: 20080812, end: 20081006
  2. TAXOTERE [Concomitant]
     Indication: POSTOPERATIVE CARE
     Dosage: UNK
     Route: 042
     Dates: start: 20060101
  3. XELODA [Concomitant]
     Indication: TUMOUR MARKER INCREASED
     Dosage: 2400 MG
     Route: 048
     Dates: start: 20081006
  4. AROMASIN [Concomitant]
     Indication: BREAST CANCER RECURRENT
     Dosage: UNK
     Dates: start: 20040301, end: 20051101
  5. ZOMETA [Suspect]
     Indication: METASTASES TO BONE
     Dosage: 4 MG, QMO
     Route: 042
     Dates: start: 20070609, end: 20100426
  6. FARMORUBICIN [Concomitant]
     Indication: POSTOPERATIVE CARE
     Dosage: UNK
     Route: 042
     Dates: start: 20051001
  7. ENDOXAN [Concomitant]
     Indication: POSTOPERATIVE CARE
     Dosage: UNK
     Route: 042
     Dates: start: 20051001
  8. HYSRON [Concomitant]
     Indication: TUMOUR MARKER INCREASED
     Dosage: 600 MG
     Route: 048
     Dates: start: 20070609, end: 20080811
  9. FEMARA [Concomitant]
     Indication: POSTOPERATIVE CARE
     Dosage: 2.5 MG, UNK
     Route: 048
     Dates: start: 20060808, end: 20070608

REACTIONS (6)
  - FATIGUE [None]
  - FEMUR FRACTURE [None]
  - PAIN IN EXTREMITY [None]
  - METASTASES TO LYMPH NODES [None]
  - BONE CALLUS EXCESSIVE [None]
  - OSTEONECROSIS OF JAW [None]
